FAERS Safety Report 6705762-6 (Version None)
Quarter: 2010Q2

REPORT INFORMATION
  Report Type: 
  Country: None (occurrence: None)
  Receive Date: 20100503
  Receipt Date: 20080703
  Transmission Date: 20101027
  Serious: Yes (Other)
  Sender: FDA-Public Use
  Company Number: US-BAYER-200828297NA

PATIENT
  Sex: Female
  Weight: 50 kg

DRUGS (1)
  1. YAZ [Suspect]
     Indication: DRUG USE FOR UNKNOWN INDICATION
     Route: 048
     Dates: start: 20080629

REACTIONS (4)
  - ASTHENIA [None]
  - FATIGUE [None]
  - NAUSEA [None]
  - SYNCOPE [None]
